FAERS Safety Report 6138332-1 (Version None)
Quarter: 2009Q1

REPORT INFORMATION
  Report Type: 
  Country: None (occurrence: None)
  Receive Date: 20090331
  Receipt Date: 20090317
  Transmission Date: 20090719
  Serious: Yes (Death, Hospitalization)
  Sender: FDA-Public Use
  Company Number: FR-ROCHE-615043

PATIENT
  Sex: Male

DRUGS (4)
  1. CAPECITABINE [Suspect]
     Route: 048
     Dates: start: 20080211
  2. CAPECITABINE [Suspect]
     Route: 048
     Dates: start: 20080728
  3. RADIOTHERAPY MIXTURE [Suspect]
     Dosage: DOSE REPORTED AS 1.8 GY.
     Route: 065
     Dates: start: 20080211
  4. RADIOTHERAPY MIXTURE [Suspect]
     Dosage: DOSE REPORTED AS 1.8 GY.
     Route: 065
     Dates: start: 20080728

REACTIONS (3)
  - HAEMORRHAGE [None]
  - POST PROCEDURAL INFECTION [None]
  - SEPSIS [None]
